FAERS Safety Report 9521751 (Version 1)
Quarter: 2013Q1

REPORT INFORMATION
  Report Type: Spontaneous
  Country: US (occurrence: None)
  Receive Date: 20130305
  Receipt Date: 20130305
  Transmission Date: 20140127
  Serious: Yes (Other)
  Sender: FDA-Public Use
  Company Number: 163-21880-12072304

PATIENT
  Age: 86 Year
  Sex: Male

DRUGS (4)
  1. REVLIMID (LENALIDOMIDE) (CAPSULES) [Suspect]
     Indication: LYMPHOPROLIFERATIVE DISORDER
     Dosage: 21 IN 21 D
     Route: 048
     Dates: start: 20120601
  2. ARANESP (DARBEPOETIN ALFA) (UNKNOWN) [Concomitant]
  3. MULTI VITAMIN MENS (MULTIVITAMINS) (UNKNOWN) [Concomitant]
  4. CEFADROXIL (CEFADROXIL) (UNKNOWN) [Concomitant]

REACTIONS (2)
  - Cellulitis [None]
  - Full blood count decreased [None]
